FAERS Safety Report 10185186 (Version 4)
Quarter: 2014Q2

REPORT INFORMATION
  Report Type: Spontaneous
  Country: US (occurrence: US)
  Receive Date: 20140521
  Receipt Date: 20140616
  Transmission Date: 20141212
  Serious: Yes (Life-Threatening, Hospitalization)
  Sender: FDA-Public Use
  Company Number: US-NOVOPROD-410684

PATIENT
  Age: 65 Year
  Sex: Female
  Weight: 78.1 kg

DRUGS (2)
  1. LEVEMIR [Suspect]
     Indication: TYPE 2 DIABETES MELLITUS
     Dosage: 26 U, QD AT BEDTIME
     Route: 058
     Dates: start: 20140417
  2. LANTUS [Suspect]
     Indication: TYPE 2 DIABETES MELLITUS
     Dosage: 26 U, QD AT BEDTIME
     Route: 058
     Dates: end: 20140416

REACTIONS (1)
  - Cerebral infarction [Recovered/Resolved]
